FAERS Safety Report 19507137 (Version 5)
Quarter: 2021Q3

REPORT INFORMATION
  Report Type: Spontaneous
  Country: AR (occurrence: AR)
  Receive Date: 20210708
  Receipt Date: 20210907
  Transmission Date: 20211014
  Serious: Yes (Other)
  Sender: FDA-Public Use
  Company Number: AR-PFIZER INC-2019342330

PATIENT
  Age: 43 Year
  Sex: Female

DRUGS (26)
  1. AMPHOTERICIN B. [Suspect]
     Active Substance: AMPHOTERICIN B
     Dosage: UNK
     Route: 042
     Dates: start: 20190614
  2. LOTEPREDNOL [Concomitant]
     Active Substance: LOTEPREDNOL
     Dosage: 25 MG/5 ML
     Route: 047
  3. COLECALCIFEROL [Concomitant]
     Active Substance: CHOLECALCIFEROL
     Dosage: 20000 IU/ML
     Route: 048
  4. EXTRACTO DESPROTEINIZADO DE SANGRE DE TERNERA [Concomitant]
     Dosage: 200 MG/G
     Route: 047
  5. DEXTRAN 70 [Concomitant]
     Active Substance: DEXTRAN 70
     Dosage: 15 ML, UNK
     Route: 047
  6. URSODEOXYCHOLIC ACID [Concomitant]
     Active Substance: URSODIOL
     Dosage: 300 MG, UNK
     Route: 048
  7. VORICONAZOLE. [Suspect]
     Active Substance: VORICONAZOLE
     Indication: SCEDOSPORIUM INFECTION
     Dosage: 200 MG, 2X/DAY
     Route: 042
     Dates: start: 20180727, end: 20181204
  8. AMPHOTERICIN B. [Suspect]
     Active Substance: AMPHOTERICIN B
     Dosage: 250 MG, 1X/DAY
     Route: 042
     Dates: start: 20180905, end: 20180905
  9. LEVOTHYROXINE. [Concomitant]
     Active Substance: LEVOTHYROXINE
     Dosage: 75 UG
     Route: 048
  10. CLOTRIMAZOLE. [Concomitant]
     Active Substance: CLOTRIMAZOLE
     Dosage: 10 MG/G, UNK
  11. CRESEMBA [Suspect]
     Active Substance: ISAVUCONAZONIUM SULFATE
     Indication: SCEDOSPORIUM INFECTION
     Dosage: 200 MG,1 IN 8 HR
     Route: 048
     Dates: start: 20190711, end: 20190712
  12. ACYCLOVIR [ACICLOVIR] [Concomitant]
     Active Substance: ACYCLOVIR
     Dosage: UNK
  13. OMEPRAZOLE. [Concomitant]
     Active Substance: OMEPRAZOLE
     Dosage: 20 MG, UNK
     Route: 048
  14. AMPHOTERICIN B. [Suspect]
     Active Substance: AMPHOTERICIN B
     Indication: SCEDOSPORIUM INFECTION
     Dosage: 150 MG, 1X/DAY
     Route: 042
     Dates: start: 20180727
  15. MACROGOL [Concomitant]
     Active Substance: POLYETHYLENE GLYCOLS
     Dosage: 60MG/15ML
     Route: 047
  16. VORICONAZOLE. [Suspect]
     Active Substance: VORICONAZOLE
     Indication: SCEDOSPORIUM INFECTION
     Dosage: 300 MG, 2X/DAY
     Route: 048
     Dates: start: 20181205, end: 20190606
  17. MAGNESIUM CITRATE. [Concomitant]
     Active Substance: MAGNESIUM CITRATE
     Dosage: 528 MG, UNK
     Route: 048
  18. CETIRIZINE [Concomitant]
     Active Substance: CETIRIZINE HYDROCHLORIDE
     Dosage: 10 MG, UNK
     Route: 048
  19. LEVETIRACETAM. [Concomitant]
     Active Substance: LEVETIRACETAM
     Dosage: 1000 MG, UNK
     Route: 048
  20. SUCRALFATE. [Concomitant]
     Active Substance: SUCRALFATE
     Dosage: 1000MG/5ML
     Route: 048
  21. ACYCLOVIR [ACICLOVIR] [Concomitant]
     Active Substance: ACYCLOVIR
     Dosage: 800 MG, UNK
     Route: 048
  22. CALCIUM CITRATE [Concomitant]
     Active Substance: CALCIUM CITRATE
     Dosage: 1950 MG, UNK
     Route: 048
  23. BETAMETHASONE. [Concomitant]
     Active Substance: BETAMETHASONE
     Dosage: 1 MG/G, EXTERNAL
     Route: 009
  24. CRESEMBA [Suspect]
     Active Substance: ISAVUCONAZONIUM SULFATE
     Dosage: 200 MG, 1X/DAY
     Route: 048
     Dates: start: 20190713, end: 20190731
  25. VANCOMYCIN HCL [Suspect]
     Active Substance: VANCOMYCIN HYDROCHLORIDE
     Dosage: UNK
  26. CETRIMIDE [Concomitant]
     Active Substance: CETRIMIDE
     Dosage: 0.1 MG/G
     Route: 047

REACTIONS (4)
  - Off label use [Unknown]
  - Rash maculo-papular [Unknown]
  - Rash morbilliform [Unknown]
  - Hepatotoxicity [Recovered/Resolved]

NARRATIVE: CASE EVENT DATE: 201907
